FAERS Safety Report 14072557 (Version 1)
Quarter: 2017Q4

REPORT INFORMATION
  Report Type: Spontaneous
  Country: US (occurrence: US)
  Receive Date: 20171010
  Receipt Date: 20171010
  Transmission Date: 20180321
  Serious: No
  Sender: FDA-Public Use
  Company Number: US-SA-2017SA170208

PATIENT
  Age: 57 Year
  Sex: Female

DRUGS (1)
  1. DUPIXENT [Suspect]
     Active Substance: DUPILUMAB
     Indication: DERMATITIS ATOPIC
     Route: 058
     Dates: start: 201707

REACTIONS (5)
  - Skin haemorrhage [Unknown]
  - Drug ineffective [Unknown]
  - Infection [Unknown]
  - Pruritus [Unknown]
  - Scab [Unknown]

NARRATIVE: CASE EVENT DATE: 2017
